FAERS Safety Report 20770781 (Version 2)
Quarter: 2022Q2

REPORT INFORMATION
  Report Type: Spontaneous
  Country: IT (occurrence: IT)
  Receive Date: 20220429
  Receipt Date: 20220506
  Transmission Date: 20220721
  Serious: Yes (Hospitalization, Other)
  Sender: FDA-Public Use
  Company Number: IT-SEATTLE GENETICS-2022SGN03997

PATIENT
  Age: 13 Year
  Sex: Female

DRUGS (1)
  1. ADCETRIS [Suspect]
     Active Substance: BRENTUXIMAB VEDOTIN
     Indication: Hodgkin^s disease
     Dosage: 1.8 MG/KG, Q3WEEKS
     Route: 042

REACTIONS (8)
  - Posterior reversible encephalopathy syndrome [Recovering/Resolving]
  - Status epilepticus [Unknown]
  - Renal impairment [Unknown]
  - Off label use [Unknown]
  - Pancytopenia [Unknown]
  - Hypertension [Unknown]
  - Thrombocytopenia [Unknown]
  - Anaemia [Unknown]
